FAERS Safety Report 6556074-5 (Version None)
Quarter: 2010Q1

REPORT INFORMATION
  Report Type: 
  Country: None (occurrence: None)
  Receive Date: 20100128
  Receipt Date: 20090831
  Transmission Date: 20100710
  Serious: No
  Sender: FDA-Public Use
  Company Number: US-TEVA-189317USA

PATIENT
  Sex: Female

DRUGS (6)
  1. COPAXONE [Suspect]
     Indication: MULTIPLE SCLEROSIS
     Route: 058
     Dates: start: 19991206, end: 20090101
  2. LEVOTHYROXINE SODIUM [Concomitant]
  3. RANITIDINE [Concomitant]
  4. ALPRAZOLAM [Concomitant]
  5. TRIAZOLAM [Concomitant]
  6. SIMVASTATIN [Concomitant]

REACTIONS (1)
  - POLYMYALGIA RHEUMATICA [None]
